FAERS Safety Report 24926337 (Version 1)
Quarter: 2025Q1

REPORT INFORMATION
  Report Type: Report from Study
  Country: IN (occurrence: IN)
  Receive Date: 20250205
  Receipt Date: 20250205
  Transmission Date: 20250409
  Serious: Yes (Death)
  Sender: ROCHE
  Company Number: IN-ROCHE-10000039205

PATIENT
  Age: 66 Year
  Sex: Male
  Weight: 63.2 kg

DRUGS (2)
  1. TECENTRIQ [Suspect]
     Active Substance: ATEZOLIZUMAB
     Indication: Lung neoplasm malignant
     Dosage: 10TH CYCLE INTERVAL- 24TH DAY
     Route: 040
     Dates: start: 20240322
  2. TECENTRIQ [Suspect]
     Active Substance: ATEZOLIZUMAB
     Route: 040

REACTIONS (9)
  - Off label use [Unknown]
  - Blood pressure systolic increased [Unknown]
  - Hypotension [Unknown]
  - Hypertension [Unknown]
  - Diarrhoea [Unknown]
  - General physical health deterioration [Unknown]
  - Metastasis [Fatal]
  - Hypoxia [Fatal]
  - Hypertension [Fatal]

NARRATIVE: CASE EVENT DATE: 20250111
